FAERS Safety Report 16044300 (Version 2)
Quarter: 2019Q1

REPORT INFORMATION
  Report Type: Spontaneous
  Country: US (occurrence: US)
  Receive Date: 20190306
  Receipt Date: 20190319
  Transmission Date: 20190418
  Serious: Yes (Death, Hospitalization, Other)
  Sender: FDA-Public Use
  Company Number: US-GILEAD-2019-0394154

PATIENT
  Age: 42 Year
  Sex: Male
  Weight: 97.3 kg

DRUGS (31)
  1. LEVAQUIN [Concomitant]
     Active Substance: LEVOFLOXACIN
  2. FLUDARABINE [Suspect]
     Active Substance: FLUDARABINE PHOSPHATE
     Indication: BONE MARROW CONDITIONING REGIMEN
     Dosage: UNK
     Route: 065
     Dates: start: 20190108, end: 20190110
  3. DEXAMETHASONE. [Concomitant]
     Active Substance: DEXAMETHASONE
     Indication: HAEMOPHAGOCYTIC LYMPHOHISTIOCYTOSIS
     Dosage: 10 MG/M2
     Dates: start: 20181226, end: 20181228
  4. DEXAMETHASONE. [Concomitant]
     Active Substance: DEXAMETHASONE
     Dosage: 5 MG/M2
     Dates: start: 20181229, end: 20190107
  5. ZOVIRAX [Concomitant]
     Active Substance: ACYCLOVIR
  6. NOVOLOG [Concomitant]
     Active Substance: INSULIN ASPART
  7. ATROVENT [Concomitant]
     Active Substance: IPRATROPIUM BROMIDE
  8. LOPRESSOR [Concomitant]
     Active Substance: METOPROLOL TARTRATE
  9. NEBUPENT [Concomitant]
     Active Substance: PENTAMIDINE ISETHIONATE
  10. BACTRIM DS [Concomitant]
     Active Substance: SULFAMETHOXAZOLE\TRIMETHOPRIM
  11. ETOPOSIDE. [Concomitant]
     Active Substance: ETOPOSIDE
     Dosage: 180 MG
     Dates: start: 20190201, end: 20190201
  12. XYLOCAINE [Concomitant]
     Active Substance: LIDOCAINE HYDROCHLORIDE
  13. XOPENEX [Concomitant]
     Active Substance: LEVALBUTEROL HYDROCHLORIDE
  14. VERSED [Concomitant]
     Active Substance: MIDAZOLAM HYDROCHLORIDE
  15. SODIUM CHLORIDE. [Concomitant]
     Active Substance: SODIUM CHLORIDE
  16. CASPOFUNGIN [Concomitant]
     Active Substance: CASPOFUNGIN
  17. DEXAMETHASONE. [Concomitant]
     Active Substance: DEXAMETHASONE
     Dosage: 10 MG, TID (X9 DOSES)
     Route: 042
     Dates: start: 20190121, end: 20190123
  18. CYCLOPHOSPHAMIDE. [Suspect]
     Active Substance: CYCLOPHOSPHAMIDE
     Indication: BONE MARROW CONDITIONING REGIMEN
     Dosage: UNK
     Route: 065
     Dates: start: 20190108, end: 20190110
  19. DEXAMETHASONE. [Concomitant]
     Active Substance: DEXAMETHASONE
     Dosage: 10 MG, BID (X4 DOSES)
     Route: 042
     Dates: start: 20190124, end: 20190126
  20. MAXIPIME [Concomitant]
     Active Substance: CEFEPIME HYDROCHLORIDE
  21. KEPPRA [Concomitant]
     Active Substance: LEVETIRACETAM
  22. ETOPOSIDE. [Concomitant]
     Active Substance: ETOPOSIDE
     Dosage: 180 MG
     Dates: start: 20190208, end: 20190208
  23. YESCARTA [Suspect]
     Active Substance: AXICABTAGENE CILOLEUCEL
     Indication: DIFFUSE LARGE B-CELL LYMPHOMA
     Dosage: 2 X 10 6, ONCE
     Route: 042
     Dates: start: 20190114, end: 20190114
  24. MAGNESIUM SULFATE. [Concomitant]
     Active Substance: MAGNESIUM SULFATE
  25. PROTONIX [Concomitant]
     Active Substance: PANTOPRAZOLE SODIUM
  26. ETOPOSIDE. [Concomitant]
     Active Substance: ETOPOSIDE
     Indication: HAEMOPHAGOCYTIC LYMPHOHISTIOCYTOSIS
     Dosage: 100 MG/M2, QD
     Dates: start: 20181226, end: 20181228
  27. ETOPOSIDE. [Concomitant]
     Active Substance: ETOPOSIDE
     Dosage: 180 MG
     Dates: start: 20190130, end: 20190130
  28. ETOPOSIDE. [Concomitant]
     Active Substance: ETOPOSIDE
     Dosage: 180 MG
     Dates: start: 20190205, end: 20190205
  29. ETOPOSIDE. [Concomitant]
     Active Substance: ETOPOSIDE
     Dosage: 180 MG
     Dates: start: 20190215, end: 20190215
  30. DEXAMETHASONE. [Concomitant]
     Active Substance: DEXAMETHASONE
     Dosage: 10 MG, ONCE
     Route: 042
     Dates: start: 20190127, end: 20190127
  31. SUBLIMAZE [FENTANYL] [Concomitant]

REACTIONS (4)
  - Drug ineffective [Fatal]
  - Cytokine release syndrome [Fatal]
  - Haemophagocytic lymphohistiocytosis [Fatal]
  - Death [Fatal]

NARRATIVE: CASE EVENT DATE: 20190117
